FAERS Safety Report 22032147 (Version 1)
Quarter: 2023Q1

REPORT INFORMATION
  Report Type: Spontaneous
  Country: FR (occurrence: FR)
  Receive Date: 20230224
  Receipt Date: 20230224
  Transmission Date: 20230418
  Serious: Yes (Hospitalization)
  Sender: FDA-Public Use
  Company Number: FR-DENTSPLY-2023SCDP000041

PATIENT
  Sex: Male
  Weight: 6.7 kg

DRUGS (1)
  1. LIDOCAINE\PRILOCAINE [Suspect]
     Active Substance: LIDOCAINE\PRILOCAINE
     Indication: Local anaesthesia
     Dosage: 5 GRAM TOTAL EMLA 5%, CREAM
     Route: 003
     Dates: start: 20220713, end: 20220713

REACTIONS (6)
  - Petechiae [Recovered/Resolved]
  - Penile oedema [Recovered/Resolved]
  - Oxygen saturation decreased [Recovered/Resolved]
  - Penile erythema [Recovered/Resolved]
  - Blood methaemoglobin present [Recovered/Resolved]
  - Cyanosis [Recovered/Resolved]

NARRATIVE: CASE EVENT DATE: 20220713
